FAERS Safety Report 4721065-3 (Version None)
Quarter: 2005Q3

REPORT INFORMATION
  Report Type: 
  Country: None (occurrence: None)
  Receive Date: 20050719
  Receipt Date: 20041108
  Transmission Date: 20060218
  Serious: Yes (Other)
  Sender: FDA-Public Use
  Company Number: 2004089438

PATIENT
  Age: 82 Year
  Sex: Male
  Weight: 77.1115 kg

DRUGS (3)
  1. CELEBREX [Suspect]
     Indication: ARTHRITIS
     Dosage: 200 MG (200 MG, 1 IN 1 AS NECESSARY, ORAL
     Route: 048
     Dates: start: 20040101
  2. IBUPROFEN [Suspect]
     Indication: ARTHRITIS
     Dosage: EVERY DAY
     Dates: start: 20040101
  3. CODEINE SUL TAB [Concomitant]

REACTIONS (1)
  - STRESS ULCER [None]
